FAERS Safety Report 8247809-4 (Version None)
Quarter: 2012Q1

REPORT INFORMATION
  Report Type: 
  Country: None (occurrence: None)
  Receive Date: 20120330
  Receipt Date: 20120326
  Transmission Date: 20120608
  Serious: Yes (Hospitalization)
  Sender: FDA-Public Use
  Company Number: US-BAYER-2011-122202

PATIENT
  Age: 35 Year
  Sex: Female

DRUGS (3)
  1. SUMATRIPTAN [Concomitant]
  2. YAZ [Suspect]
     Indication: CONTRACEPTION
     Dosage: UNK
     Route: 048
     Dates: start: 20090301, end: 20100401
  3. YAZ [Suspect]
     Indication: MENSTRUAL CYCLE MANAGEMENT

REACTIONS (8)
  - EMOTIONAL DISTRESS [None]
  - GALLBLADDER DISORDER [None]
  - ANXIETY [None]
  - PAIN [None]
  - FEAR [None]
  - PSYCHOLOGICAL TRAUMA [None]
  - ABDOMINAL PAIN [None]
  - INJURY [None]
